FAERS Safety Report 6353091-5 (Version None)
Quarter: 2009Q3

REPORT INFORMATION
  Report Type: 
  Country: None (occurrence: None)
  Receive Date: 20090912
  Receipt Date: 20090622
  Transmission Date: 20100115
  Serious: No
  Sender: FDA-Public Use
  Company Number: US-ABBOTT-08P-163-0452706-00

PATIENT
  Sex: Female
  Weight: 81.72 kg

DRUGS (6)
  1. HUMIRA [Suspect]
     Indication: COLITIS
     Route: 058
     Dates: start: 20080301
  2. MERCAPTOPURINE [Concomitant]
     Indication: COLITIS
     Route: 048
  3. LIALDA [Concomitant]
     Indication: COLITIS
     Dosage: TWO TABLETS IN AM
     Route: 048
     Dates: start: 20080101
  4. STEROIDS [Concomitant]
     Indication: COLITIS
     Route: 048
     Dates: start: 20080101
  5. STEROIDS [Concomitant]
     Dosage: DECREASING DOSE BY 5 MG PER WEEK
     Route: 048
  6. STEROIDS [Concomitant]
     Route: 048

REACTIONS (1)
  - DRUG DELIVERY SYSTEM MALFUNCTION [None]
